FAERS Safety Report 23066598 (Version 1)
Quarter: 2023Q4

REPORT INFORMATION
  Report Type: Report from Study
  Country: US (occurrence: US)
  Receive Date: 20231015
  Receipt Date: 20231015
  Transmission Date: 20240109
  Serious: Yes (Hospitalization, Other)
  Sender: FDA-Public Use
  Company Number: US-ABBVIE-5446145

PATIENT
  Age: 18 Year
  Sex: Female

DRUGS (1)
  1. QULIPTA [Suspect]
     Active Substance: ATOGEPANT
     Indication: Product used for unknown indication
     Route: 048
     Dates: start: 20230826

REACTIONS (4)
  - Seizure [Unknown]
  - Postural orthostatic tachycardia syndrome [Unknown]
  - Unevaluable event [Unknown]
  - Conversion disorder [Unknown]

NARRATIVE: CASE EVENT DATE: 20230901
